FAERS Safety Report 17088415 (Version 1)
Quarter: 2019Q4

REPORT INFORMATION
  Report Type: Spontaneous
  Country: JP (occurrence: JP)
  Receive Date: 20191128
  Receipt Date: 20191128
  Transmission Date: 20200122
  Serious: Yes (Hospitalization)
  Sender: FDA-Public Use
  Company Number: JP-FERRINGPH-2019FE07469

PATIENT
  Age: 78 Year
  Sex: Male

DRUGS (2)
  1. MINIRINMELT [Suspect]
     Active Substance: DESMOPRESSIN ACETATE
     Indication: DIABETES INSIPIDUS
     Dosage: UNK
     Route: 065
  2. EQUA [Concomitant]
     Active Substance: VILDAGLIPTIN
     Indication: DIABETES MELLITUS
     Route: 065

REACTIONS (2)
  - Pneumonia [Recovered/Resolved]
  - Wrong technique in product usage process [Unknown]
